FAERS Safety Report 6434037-8 (Version None)
Quarter: 2009Q4

REPORT INFORMATION
  Report Type: 
  Country: None (occurrence: None)
  Receive Date: 20091109
  Receipt Date: 20091109
  Transmission Date: 20100525
  Serious: Yes (Disabling)
  Sender: FDA-Public Use
  Company Number: None

PATIENT
  Age: 67 Year
  Sex: Female
  Weight: 131.5431 kg

DRUGS (4)
  1. CIPRO [Suspect]
     Dosage: 500 MG 1 BY MOUTH TWICE MOUTH
     Route: 048
     Dates: start: 20090201
  2. CIPRO [Suspect]
     Dosage: 500 MG 1 BY MOUTH TWICE MOUTH
     Route: 048
     Dates: start: 20090401
  3. CIPRO [Suspect]
     Dosage: 500 MG 1 BY MOUTH TWICE MOUTH
     Route: 048
     Dates: start: 20090801
  4. SAVELLA [Suspect]
     Dosage: 50 MG 1 DAILY MOUTH
     Route: 048
     Dates: start: 20090624

REACTIONS (5)
  - ABASIA [None]
  - CONSTIPATION [None]
  - HYPOPHAGIA [None]
  - NAUSEA [None]
  - TENDONITIS [None]
